FAERS Safety Report 10004311 (Version 1)
Quarter: 2014Q1

REPORT INFORMATION
  Report Type: Spontaneous
  Country: CO (occurrence: CO)
  Receive Date: 20140312
  Receipt Date: 20140312
  Transmission Date: 20141002
  Serious: Yes (Other)
  Sender: FDA-Public Use
  Company Number: CO-B.I. PHARMACEUTICALS,INC./RIDGEFIELD-2014-BI-10571CL

PATIENT
  Age: 73 Year
  Sex: Male

DRUGS (2)
  1. PRADAXA [Suspect]
     Indication: CEREBROVASCULAR ACCIDENT PROPHYLAXIS
     Dosage: 440 MG
     Route: 048
     Dates: start: 2010, end: 20140304
  2. PRADAXA [Suspect]
     Indication: ATRIAL FIBRILLATION

REACTIONS (1)
  - Renal artery thrombosis [Recovered/Resolved]
